FAERS Safety Report 7047014-3 (Version None)
Quarter: 2010Q4

REPORT INFORMATION
  Report Type: 
  Country: None (occurrence: None)
  Receive Date: 20101015
  Receipt Date: 20101006
  Transmission Date: 20110411
  Serious: Yes (Hospitalization)
  Sender: FDA-Public Use
  Company Number: CH-ASTRAZENECA-2010SE47368

PATIENT
  Age: 78 Year
  Sex: Male

DRUGS (10)
  1. TENORMIN [Suspect]
     Route: 048
     Dates: start: 20100910
  2. BLOPRESS [Concomitant]
     Route: 048
  3. PLAVIX [Concomitant]
  4. TRIATEC [Concomitant]
     Route: 048
  5. DIAMICRON [Concomitant]
     Route: 048
  6. ACTOS [Concomitant]
     Route: 048
  7. PRADIF T [Concomitant]
     Route: 048
  8. PANTOPRAZOLE SODIUM [Concomitant]
     Route: 048
  9. AVODART [Concomitant]
     Route: 048
  10. DETRUSITOL [Concomitant]
     Route: 048

REACTIONS (3)
  - ASTHENIA [None]
  - ATRIOVENTRICULAR BLOCK COMPLETE [None]
  - DIZZINESS [None]
